FAERS Safety Report 25685716 (Version 1)
Quarter: 2025Q3

REPORT INFORMATION
  Report Type: Spontaneous
  Country: US (occurrence: US)
  Receive Date: 20250815
  Receipt Date: 20250815
  Transmission Date: 20251020
  Serious: No
  Sender: SANOFI AVENTIS
  Company Number: US-SA-2025SA239189

PATIENT
  Age: 55 Year
  Sex: Male
  Weight: 102.05 kg

DRUGS (5)
  1. DUPIXENT [Suspect]
     Active Substance: DUPILUMAB
     Indication: Dermatitis atopic
     Dosage: 300 MG, QOW
     Route: 058
  2. TACROLIMUS [Concomitant]
     Active Substance: TACROLIMUS
  3. VITAMINS [Concomitant]
     Active Substance: VITAMINS
  4. MUCINEX [Concomitant]
     Active Substance: GUAIFENESIN
  5. VALSARTAN [Concomitant]
     Active Substance: VALSARTAN

REACTIONS (1)
  - Drug ineffective [Unknown]
